FAERS Safety Report 8903258 (Version 1)
Quarter: 2012Q4

REPORT INFORMATION
  Report Type: 
  Country: JP (occurrence: JP)
  Receive Date: 20121113
  Receipt Date: 20121113
  Transmission Date: 20130627
  Serious: Yes (Other)
  Sender: FDA-Public Use
  Company Number: JP-ROCHE-752069

PATIENT
  Age: 54 Year
  Sex: Female

DRUGS (10)
  1. HERCEPTIN [Suspect]
     Indication: BREAST CANCER METASTATIC
     Dosage: DOSAGE IS UNCERTAIN. DISCONTINUED.
     Route: 041
  2. HERCEPTIN [Suspect]
     Route: 041
  3. EPIRUBICIN HYDROCHLORIDE [Suspect]
     Indication: BREAST CANCER METASTATIC
     Dosage: Three courses and uncertain dosage
     Route: 041
  4. CYCLOPHOSPHAMIDE [Suspect]
     Indication: BREAST CANCER METASTATIC
     Dosage: Three courses and uncertain dosage
     Route: 041
  5. TAXOL [Concomitant]
     Indication: BREAST CANCER METASTATIC
     Dosage: DOSAGE IS UNCERTAIN.
     Route: 041
  6. GEMZAR [Concomitant]
     Indication: BREAST CANCER METASTATIC
     Dosage: DOSAGE IS UNCERTAIN.
     Route: 041
  7. FEMARA [Concomitant]
     Indication: BREAST CANCER METASTATIC
     Route: 048
  8. ZOLEDRONIC ACID [Concomitant]
     Indication: BREAST CANCER METASTATIC
     Dosage: Dosage is uncertain
     Route: 041
  9. MS CONTIN [Concomitant]
     Indication: CANCER PAIN
     Dosage: Dosage is uncertain
     Route: 048
  10. FENTANYL CITRATE [Concomitant]
     Indication: CANCER PAIN
     Dosage: Dosage is uncertain
     Route: 062

REACTIONS (6)
  - Metastases to bone [Unknown]
  - Metastases to bone [Unknown]
  - Breast cancer recurrent [Unknown]
  - Cardiotoxicity [Recovered/Resolved]
  - Carcinoembryonic antigen increased [Unknown]
  - Bone marrow failure [Recovered/Resolved]
